FAERS Safety Report 24772692 (Version 2)
Quarter: 2024Q4

REPORT INFORMATION
  Report Type: Spontaneous
  Country: US (occurrence: US)
  Receive Date: 20241225
  Receipt Date: 20241227
  Transmission Date: 20250115
  Serious: Yes (Hospitalization, Other)
  Sender: ABBVIE
  Company Number: US-ABBVIE-6058796

PATIENT
  Age: 7 Year
  Sex: Female

DRUGS (2)
  1. LUPRON DEPOT-PED [Suspect]
     Active Substance: LEUPROLIDE ACETATE
     Indication: Precocious puberty
     Dosage: FORM STRENGTH: 30 MILLIGRAM
     Route: 030
     Dates: end: 20240920
  2. LUPRON DEPOT-PED [Suspect]
     Active Substance: LEUPROLIDE ACETATE
     Indication: Precocious puberty

REACTIONS (4)
  - Joint effusion [Unknown]
  - Localised infection [Unknown]
  - Gait disturbance [Unknown]
  - Pain in extremity [Unknown]

NARRATIVE: CASE EVENT DATE: 20240101
